FAERS Safety Report 7172672-2 (Version None)
Quarter: 2010Q4

REPORT INFORMATION
  Report Type: 
  Country: None (occurrence: None)
  Receive Date: 20101217
  Receipt Date: 20101213
  Transmission Date: 20110411
  Serious: Yes (Hospitalization, Other)
  Sender: FDA-Public Use
  Company Number: US-AMGEN-USASP2010004781

PATIENT

DRUGS (6)
  1. NPLATE [Suspect]
     Indication: IDIOPATHIC THROMBOCYTOPENIC PURPURA
     Dosage: 600 A?G, QWK
     Route: 058
     Dates: start: 20100506
  2. ALFUZOSIN [Concomitant]
     Dosage: 10 MG, UNK
  3. CELECOXIB [Concomitant]
     Dosage: 200 MG, UNK
  4. VICODIN [Concomitant]
  5. PROMETHAZINE [Concomitant]
     Dosage: 25 MG, UNK
  6. ALLOPURINOL [Concomitant]
     Dosage: 300 MG, UNK
     Dates: start: 20101008

REACTIONS (2)
  - PLATELET COUNT DECREASED [None]
  - SEPSIS [None]
